FAERS Safety Report 24449976 (Version 1)
Quarter: 2024Q4

REPORT INFORMATION
  Report Type: Spontaneous
  Country: US (occurrence: None)
  Receive Date: 20241016
  Receipt Date: 20241016
  Transmission Date: 20250115
  Serious: No
  Sender: Public
  Company Number: None

PATIENT
  Age: 68 Year
  Sex: Male

DRUGS (1)
  1. ROSUVASTATIN CALCIUM [Suspect]
     Active Substance: ROSUVASTATIN CALCIUM
     Indication: Rhabdomyolysis
     Dosage: FREQUENCY : AT BEDTIME;?
     Route: 048

REACTIONS (7)
  - Rhabdomyolysis [None]
  - Fatigue [None]
  - Asthenia [None]
  - Melaena [None]
  - Dialysis [None]
  - Nephropathy [None]
  - Renal tubular necrosis [None]

NARRATIVE: CASE EVENT DATE: 20240118
